FAERS Safety Report 7586749-0 (Version None)
Quarter: 2011Q3

REPORT INFORMATION
  Report Type: 
  Country: None (occurrence: None)
  Receive Date: 20110701
  Receipt Date: 20110627
  Transmission Date: 20111222
  Serious: Yes (Other)
  Sender: FDA-Public Use
  Company Number: JP-MERCK-1106USA03895

PATIENT
  Age: 81 Year

DRUGS (2)
  1. JANUVIA [Suspect]
     Indication: DIABETES MELLITUS
     Route: 048
     Dates: start: 20110101, end: 20110501
  2. CONIEL [Concomitant]
     Indication: HYPERTENSION
     Route: 048

REACTIONS (1)
  - CARDIAC FAILURE CONGESTIVE [None]
